FAERS Safety Report 5781094-8 (Version None)
Quarter: 2008Q2

REPORT INFORMATION
  Report Type: 
  Country: None (occurrence: None)
  Receive Date: 20080620
  Receipt Date: 20080613
  Transmission Date: 20081010
  Serious: Yes (Other)
  Sender: FDA-Public Use
  Company Number: US-PFIZER INC-2008049997

PATIENT
  Sex: Male
  Weight: 84.09 kg

DRUGS (7)
  1. CELEBREX [Suspect]
     Indication: SPINAL COLUMN STENOSIS
     Route: 048
  2. CELEBREX [Suspect]
     Indication: NEURALGIA
  3. LYRICA [Suspect]
     Indication: SPINAL COLUMN STENOSIS
     Route: 048
  4. LYRICA [Suspect]
     Indication: NEURALGIA
  5. LISINOPRIL [Concomitant]
  6. PLAVIX [Concomitant]
  7. TAMSULOSIN HCL [Concomitant]

REACTIONS (4)
  - ACTIVITIES OF DAILY LIVING IMPAIRED [None]
  - DRUG INEFFECTIVE [None]
  - OEDEMA PERIPHERAL [None]
  - SLEEP TERROR [None]
